FAERS Safety Report 4511286-7 (Version None)
Quarter: 2004Q4

REPORT INFORMATION
  Report Type: 
  Country: None (occurrence: None)
  Receive Date: 20041122
  Receipt Date: 20040801
  Transmission Date: 20050328
  Serious: Yes (Death)
  Sender: FDA-Public Use
  Company Number: CERZ-10710

PATIENT
  Age: 70 Year
  Sex: Female

DRUGS (1)
  1. CEREZYME [Suspect]
     Indication: GAUCHER'S DISEASE
     Dosage: 3700 UNITS Q2WKS IV
     Route: 042
     Dates: start: 19951201, end: 20040801

REACTIONS (1)
  - MYELODYSPLASTIC SYNDROME [None]
